FAERS Safety Report 11071559 (Version 1)
Quarter: 2015Q2

REPORT INFORMATION
  Report Type: Report from Study
  Country: ES (occurrence: ES)
  Receive Date: 20150428
  Receipt Date: 20150428
  Transmission Date: 20150821
  Serious: Yes (Hospitalization)
  Sender: FDA-Public Use
  Company Number: ES-SA-2015SA052128

PATIENT
  Age: 40 Year
  Sex: Female

DRUGS (3)
  1. SOLOSTAR [Concomitant]
     Active Substance: DEVICE
     Indication: DEVICE THERAPY
     Dates: start: 20150115
  2. LANTUS SOLOSTAR [Suspect]
     Active Substance: INSULIN GLARGINE
     Indication: DIABETES MELLITUS
     Dosage: DOSE: 48
     Route: 058
     Dates: start: 20150115
  3. LYXUMIA [Concomitant]
     Active Substance: LIXISENATIDE
     Indication: DIABETES MELLITUS
     Dosage: DOSE: 0-20-0
     Route: 058

REACTIONS (2)
  - Brain neoplasm [Unknown]
  - Dizziness [Unknown]

NARRATIVE: CASE EVENT DATE: 20150419
